FAERS Safety Report 8087840-5 (Version None)
Quarter: 2012Q1

REPORT INFORMATION
  Report Type: 
  Country: None (occurrence: None)
  Receive Date: 20120128
  Receipt Date: 20110502
  Transmission Date: 20120608
  Serious: No
  Sender: FDA-Public Use
  Company Number: US-ABBOTT-11P-163-0723069-00

PATIENT
  Age: 42 Year
  Sex: Male

DRUGS (4)
  1. PROPECIA [Concomitant]
     Indication: ALOPECIA
     Dosage: 1-2MG DAILY
  2. LASIX [Concomitant]
     Indication: OEDEMA PERIPHERAL
     Dosage: SUPPOSED TO BE ONE DAILY BUT TAKES IT AS NEEDED
  3. HUMIRA [Suspect]
     Indication: CROHN'S DISEASE
     Dates: start: 20101101
  4. VITAMIN TAB [Concomitant]
     Indication: PRODUCT USED FOR UNKNOWN INDICATION

REACTIONS (4)
  - ERYTHEMA [None]
  - SWELLING [None]
  - PRURITUS [None]
  - INJECTION SITE PAIN [None]
